FAERS Safety Report 5565289-4 (Version None)
Quarter: 2007Q4

REPORT INFORMATION
  Report Type: 
  Country: None (occurrence: None)
  Receive Date: 20071218
  Receipt Date: 20071205
  Transmission Date: 20080405
  Serious: Yes (Hospitalization)
  Sender: FDA-Public Use
  Company Number: US-ELI_LILLY_AND_COMPANY-US200712001031

PATIENT
  Sex: Female

DRUGS (1)
  1. EVISTA [Suspect]
     Dosage: 60 MG, UNK
     Route: 048
     Dates: start: 20050901

REACTIONS (8)
  - DEPRESSED MOOD [None]
  - DIVERTICULITIS [None]
  - FATIGUE [None]
  - HOT FLUSH [None]
  - IRRITABILITY [None]
  - MENSTRUATION IRREGULAR [None]
  - MUSCLE SPASMS [None]
  - PAIN [None]
